FAERS Safety Report 13284116 (Version 1)
Quarter: 2017Q1

REPORT INFORMATION
  Report Type: Spontaneous
  Country: BR (occurrence: BR)
  Receive Date: 20170301
  Receipt Date: 20170301
  Transmission Date: 20170428
  Serious: Yes (Other)
  Sender: FDA-Public Use
  Company Number: BR-PFIZER INC-2017085516

PATIENT
  Age: 79 Year
  Sex: Female
  Weight: 78 kg

DRUGS (10)
  1. ROXETIN [Concomitant]
     Active Substance: PAROXETINE HYDROCHLORIDE
     Indication: PANIC DISORDER
     Dosage: 1 DF, DAILY
     Route: 048
     Dates: start: 1997
  2. BENICAR HCT [Concomitant]
     Active Substance: HYDROCHLOROTHIAZIDE\OLMESARTAN MEDOXOMIL
     Indication: BLOOD PRESSURE INCREASED
     Dosage: 1 DF, DAILY
     Route: 048
     Dates: start: 1997
  3. RIVOTRIL [Concomitant]
     Active Substance: CLONAZEPAM
     Indication: PANIC DISORDER
     Dosage: 4 GTT, UNK, IN TEA AT NIGHT
     Route: 048
     Dates: start: 1997
  4. XALATAN [Suspect]
     Active Substance: LATANOPROST
     Indication: GLAUCOMA
     Dosage: 1 DROP EACH EYE ONCE AT NIGHT
     Route: 047
     Dates: start: 201304
  5. OSCAL 500+D [Concomitant]
     Indication: BLOOD CALCIUM
     Dosage: 1 DF, DAILY
     Dates: start: 2014
  6. LYRICA [Suspect]
     Active Substance: PREGABALIN
  7. CONDROFLEX [Concomitant]
     Active Substance: CHONDROITIN SULFATE (BOVINE)\GLUCOSAMINE SULFATE
     Indication: CHONDROPATHY
     Dosage: 1 DF, DAILY
     Route: 048
  8. BENICAR [Concomitant]
     Active Substance: OLMESARTAN MEDOXOMIL
     Indication: BLOOD PRESSURE INCREASED
  9. VYTORIN [Concomitant]
     Active Substance: EZETIMIBE\SIMVASTATIN
     Indication: BLOOD CHOLESTEROL
     Dosage: 1 DF, DAILY
     Route: 048
     Dates: start: 1997
  10. DORENE [Concomitant]
     Dosage: 1 DF, DAILY
     Route: 048
     Dates: start: 2016

REACTIONS (2)
  - Corneal disorder [Unknown]
  - Cataract [Unknown]

NARRATIVE: CASE EVENT DATE: 2016
